FAERS Safety Report 7499204-3 (Version None)
Quarter: 2011Q2

REPORT INFORMATION
  Report Type: 
  Country: None (occurrence: None)
  Receive Date: 20110524
  Receipt Date: 20110504
  Transmission Date: 20111010
  Serious: No
  Sender: FDA-Public Use
  Company Number: US-B.I. PHARMACEUTICALS,INC./RIDGEFIELD-2011-BP-02236BP

PATIENT
  Sex: Male

DRUGS (9)
  1. PRADAXA [Suspect]
     Indication: ATRIAL FIBRILLATION
     Dosage: 300 MG
     Route: 048
     Dates: start: 20110126, end: 20110202
  2. PRADAXA [Suspect]
     Indication: ANTICOAGULANT THERAPY
  3. COREG [Concomitant]
  4. PRADAXA [Suspect]
     Indication: CEREBROVASCULAR ACCIDENT PROPHYLAXIS
  5. FAMOTIDINE [Concomitant]
  6. LISINOPRIL [Concomitant]
  7. FLOMAX [Concomitant]
  8. ASPIRIN [Concomitant]
  9. CRESTOR [Concomitant]

REACTIONS (3)
  - DIARRHOEA [None]
  - ABDOMINAL PAIN UPPER [None]
  - GASTROINTESTINAL SOUNDS ABNORMAL [None]
